FAERS Safety Report 24323898 (Version 2)
Quarter: 2024Q3

REPORT INFORMATION
  Report Type: Spontaneous
  Country: US (occurrence: US)
  Receive Date: 20240916
  Receipt Date: 20240923
  Transmission Date: 20241017
  Serious: No
  Sender: KYOWA
  Company Number: US-KYOWAKIRIN-2024KK021364

PATIENT

DRUGS (2)
  1. CRYSVITA [Suspect]
     Active Substance: BUROSUMAB-TWZA
     Indication: Hereditary hypophosphataemic rickets
     Dosage: INCREASED DOSE
     Route: 065
  2. CRYSVITA [Suspect]
     Active Substance: BUROSUMAB-TWZA
     Dosage: 7 MG, 1X/2 WEEKS (7 MG (0.7 ML))
     Route: 058

REACTIONS (3)
  - Blood test abnormal [Unknown]
  - Product use issue [Unknown]
  - Drug ineffective [Unknown]
